FAERS Safety Report 13163711 (Version 2)
Quarter: 2019Q1

REPORT INFORMATION
  Report Type: Spontaneous
  Country: US (occurrence: US)
  Receive Date: 20170130
  Receipt Date: 20190209
  Transmission Date: 20190417
  Serious: Yes (Hospitalization, Other)
  Sender: FDA-Public Use
  Company Number: US-TEVA-730953ACC

PATIENT
  Age: 66 Year
  Sex: Female

DRUGS (2)
  1. COPAXONE [Suspect]
     Active Substance: GLATIRAMER ACETATE
     Indication: MULTIPLE SCLEROSIS
     Route: 058
     Dates: start: 20150701
  2. COPAXONE [Suspect]
     Active Substance: GLATIRAMER ACETATE
     Route: 058
     Dates: start: 20180703

REACTIONS (6)
  - Small intestinal resection [Unknown]
  - Pain in extremity [Not Recovered/Not Resolved]
  - Tremor [Not Recovered/Not Resolved]
  - Headache [Not Recovered/Not Resolved]
  - Inappropriate schedule of product administration [Unknown]
  - Colectomy [Unknown]

NARRATIVE: CASE EVENT DATE: 20181223
